FAERS Safety Report 7329721-8 (Version None)
Quarter: 2011Q1

REPORT INFORMATION
  Report Type: 
  Country: None (occurrence: None)
  Receive Date: 20110303
  Receipt Date: 20110222
  Transmission Date: 20110831
  Serious: Yes (Life-Threatening, Hospitalization, Other)
  Sender: FDA-Public Use
  Company Number: US-BAXTER-2010BH031001

PATIENT
  Age: 58 Year
  Sex: Male

DRUGS (1)
  1. EXTRANEAL [Suspect]
     Indication: PERITONEAL DIALYSIS
     Route: 033

REACTIONS (19)
  - VOMITING [None]
  - HYPERLIPIDAEMIA [None]
  - CARDIOGENIC SHOCK [None]
  - TYPE 2 DIABETES MELLITUS [None]
  - CORONARY ARTERY DISEASE [None]
  - ACUTE MYOCARDIAL INFARCTION [None]
  - DEVICE INTERACTION [None]
  - PERIPHERAL ARTERIAL OCCLUSIVE DISEASE [None]
  - CARDIAC FAILURE ACUTE [None]
  - HYPOTENSION [None]
  - HYPERTENSION [None]
  - GASTRIC ULCER [None]
  - ENTEROCOCCUS TEST POSITIVE [None]
  - MALNUTRITION [None]
  - DIARRHOEA [None]
  - HYPOGLYCAEMIA [None]
  - EMPHYSEMATOUS CHOLECYSTITIS [None]
  - KLEBSIELLA TEST POSITIVE [None]
  - GASTROOESOPHAGEAL REFLUX DISEASE [None]
